FAERS Safety Report 5699401-3 (Version None)
Quarter: 2008Q2

REPORT INFORMATION
  Report Type: 
  Country: None (occurrence: None)
  Receive Date: 20080407
  Receipt Date: 20080328
  Transmission Date: 20081010
  Serious: Yes (Life-Threatening, Other)
  Sender: FDA-Public Use
  Company Number: 08H-163-0314082-00

PATIENT
  Sex: Female
  Weight: 86 kg

DRUGS (1)
  1. PANHEPRIN [Suspect]
     Indication: INDWELLING CATHETER MANAGEMENT
     Dosage: 5ML (500 UNITS), ONCE, INTRAVENOUS
     Route: 042
     Dates: start: 20080122

REACTIONS (7)
  - CHEST DISCOMFORT [None]
  - DYSPNOEA [None]
  - HYPOTENSION [None]
  - OXYGEN SATURATION DECREASED [None]
  - TACHYCARDIA [None]
  - URTICARIA [None]
  - WHEEZING [None]
